FAERS Safety Report 11171020 (Version 1)
Quarter: 2015Q2

REPORT INFORMATION
  Report Type: Spontaneous
  Country: GB (occurrence: GB)
  Receive Date: 20150608
  Receipt Date: 20150608
  Transmission Date: 20150821
  Serious: Yes (Other)
  Sender: FDA-Public Use
  Company Number: GB-TEVA-567049ACC

PATIENT
  Age: 19 Year
  Sex: Female

DRUGS (16)
  1. FENTANYL. [Suspect]
     Active Substance: FENTANYL
     Indication: PAIN
     Dosage: 37.5 MCG/H
     Route: 062
     Dates: start: 20080911, end: 20150410
  2. WATER FOR INJECTIONS [Concomitant]
     Active Substance: WATER
     Dosage: 5 ML DAILY;
     Dates: start: 20150410
  3. CITALOPRAM [Concomitant]
     Active Substance: CITALOPRAM HYDROBROMIDE
     Dosage: 8 DOSAGE FORMS DAILY;
     Route: 048
     Dates: start: 20150427
  4. EPILIM [Concomitant]
     Active Substance: VALPROATE SODIUM
     Dosage: 36 ML DAILY;
     Dates: start: 20150413
  5. HYDROCORTISONE. [Concomitant]
     Active Substance: HYDROCORTISONE
     Dosage: APPLY TWICE DAILY AS NEEDED
     Dates: start: 20150224
  6. HYOSCINE [Concomitant]
     Active Substance: SCOPOLAMINE
     Route: 062
     Dates: start: 20150107
  7. NUTRITIONAL SUPPLEMENT [Concomitant]
     Active Substance: DIETARY SUPPLEMENT
     Dosage: 2 DOSAGE FORMS DAILY;
     Dates: start: 20150119
  8. DIAZEPAM. [Concomitant]
     Active Substance: DIAZEPAM
     Dosage: 6 MILLIGRAM DAILY; AT NIGHT; DAILY DOSE 6 MILLIGRAM
     Route: 048
     Dates: start: 20150427
  9. DICLOFENAC [Concomitant]
     Active Substance: DICLOFENAC
     Dosage: TAKE 1 THREE TIMES A DAY AS NEEDED
     Dates: start: 20150417
  10. ORAMORPH SR SUSTAINED RELEASE [Concomitant]
     Active Substance: MORPHINE SULFATE
     Dosage: UP TO 4 TIMES DAILY
     Route: 048
     Dates: start: 20150427
  11. BACLOFEN. [Concomitant]
     Active Substance: BACLOFEN
     Dosage: 30 ML DAILY;
     Route: 048
     Dates: start: 20150323
  12. PARACETAMOL [Concomitant]
     Active Substance: ACETAMINOPHEN
     Dosage: MAX FOUR TIMES DAILY
     Route: 048
     Dates: start: 20150220
  13. PREGABALIN. [Concomitant]
     Active Substance: PREGABALIN
     Dosage: 100 MILLIGRAM DAILY;
     Dates: start: 20141208
  14. MOVICOL [Concomitant]
     Active Substance: POLYETHYLENE GLYCOL 3350\POTASSIUM CHLORIDE\SODIUM BICARBONATE\SODIUM CHLORIDE
     Dosage: 1 OR 2 SACHETS A DAY
     Dates: start: 20150224
  15. MIDAZOLAM [Concomitant]
     Active Substance: MIDAZOLAM\MIDAZOLAM HYDROCHLORIDE
     Indication: SEIZURE
     Dosage: UP TO 4 TIMES A DAY
     Route: 002
     Dates: start: 20150413
  16. LANSOPRAZOLE. [Concomitant]
     Active Substance: LANSOPRAZOLE
     Dosage: 30 MILLIGRAM DAILY; ORODISPERSIBLE TABLET; DAILY DOSE 30 MILLIGRAM
     Dates: start: 20150417

REACTIONS (3)
  - Dyspnoea [Recovered/Resolved]
  - Chest discomfort [Recovered/Resolved]
  - Muscle rigidity [Recovered/Resolved]
